FAERS Safety Report 6282438-3 (Version None)
Quarter: 2009Q3

REPORT INFORMATION
  Report Type: 
  Country: None (occurrence: None)
  Receive Date: 20090724
  Receipt Date: 20090715
  Transmission Date: 20100115
  Serious: Yes (Other)
  Sender: FDA-Public Use
  Company Number: US-ROCHE-602271

PATIENT
  Age: 91 Year
  Sex: Female

DRUGS (2)
  1. BONIVA [Suspect]
     Indication: OSTEOPENIA
     Route: 065
  2. BONIVA [Suspect]
     Route: 065

REACTIONS (3)
  - FALL [None]
  - LYMPHOMA [None]
  - RECTAL HAEMORRHAGE [None]
